FAERS Safety Report 23526684 (Version 1)
Quarter: 2024Q1

REPORT INFORMATION
  Report Type: Spontaneous
  Country: JP (occurrence: JP)
  Receive Date: 20240215
  Receipt Date: 20240215
  Transmission Date: 20240410
  Serious: Yes (Other)
  Sender: FDA-Public Use
  Company Number: JP-ELI_LILLY_AND_COMPANY-JP202401009746

PATIENT
  Sex: Male

DRUGS (2)
  1. OLANZAPINE [Suspect]
     Active Substance: OLANZAPINE
     Indication: Product used for unknown indication
     Route: 048
  2. OLANZAPINE [Suspect]
     Active Substance: OLANZAPINE
     Indication: Product used for unknown indication
     Dosage: STRENGTH: 10 MG
     Route: 030

REACTIONS (7)
  - Cardiac dysfunction [Unknown]
  - Fat tissue increased [Unknown]
  - Oxygen saturation decreased [Unknown]
  - Vomiting [Unknown]
  - Blood glucose increased [Unknown]
  - Weight increased [Unknown]
  - Somnolence [Unknown]
